FAERS Safety Report 12602189 (Version 1)
Quarter: 2016Q3

REPORT INFORMATION
  Report Type: Spontaneous
  Country: US (occurrence: US)
  Receive Date: 20160728
  Receipt Date: 20160728
  Transmission Date: 20161109
  Serious: No
  Sender: FDA-Public Use
  Company Number: US-PFIZER INC-2016352900

PATIENT
  Age: 50 Year
  Sex: Female
  Weight: 73.92 kg

DRUGS (1)
  1. IBRANCE [Suspect]
     Active Substance: PALBOCICLIB
     Indication: BREAST CANCER METASTATIC
     Dosage: 125 MG STRENGTH, DAYS 1-21 Q28 DAYS
     Route: 048
     Dates: start: 20160625

REACTIONS (1)
  - Gingival blister [Recovering/Resolving]
